FAERS Safety Report 15074682 (Version 1)
Quarter: 2018Q2

REPORT INFORMATION
  Report Type: Spontaneous
  Country: US (occurrence: US)
  Receive Date: 20180627
  Receipt Date: 20180627
  Transmission Date: 20180711
  Serious: Yes (Hospitalization)
  Sender: FDA-Public Use
  Company Number: US-SAOL THERAPEUTICS-2017SAO01155

PATIENT
  Sex: Female

DRUGS (4)
  1. BUPIVACAINE. [Suspect]
     Active Substance: BUPIVACAINE
     Dosage: 18.57 MG, \DAY
     Route: 037
  2. BACLOFEN. [Suspect]
     Active Substance: BACLOFEN
     Indication: PAIN
     Dosage: 42.21 ?G, \DAY
     Route: 037
  3. HYDROMORPHONE [Suspect]
     Active Substance: HYDROMORPHONE
     Dosage: 6.7547 MG, \DAY
     Route: 037
  4. CLONIDINE. [Suspect]
     Active Substance: CLONIDINE
     Dosage: 422.15 ?G, \DAY
     Route: 037

REACTIONS (4)
  - Somnolence [Recovered/Resolved]
  - Visual impairment [Unknown]
  - Off label use [Unknown]
  - Malaise [Unknown]

NARRATIVE: CASE EVENT DATE: 20170703
